FAERS Safety Report 4497488-7 (Version None)
Quarter: 2004Q4

REPORT INFORMATION
  Report Type: 
  Country: None (occurrence: None)
  Receive Date: 20041110
  Receipt Date: 20040705
  Transmission Date: 20050328
  Serious: Yes (Hospitalization)
  Sender: FDA-Public Use
  Company Number: DE-ROCHE-373532

PATIENT
  Age: 54 Year
  Sex: Male
  Weight: 74 kg

DRUGS (7)
  1. PEGASYS [Suspect]
     Route: 058
     Dates: start: 20040615
  2. REBETOL [Suspect]
     Route: 065
  3. REMERGIL [Concomitant]
     Indication: DEPRESSION
     Dates: start: 20000615
  4. METOPROLOL SUCCINATE [Concomitant]
     Indication: TACHYCARDIA
     Dates: start: 20000615
  5. ASPIRIN [Concomitant]
     Dates: start: 20040715
  6. ATORVASTATIN CALCIUM [Concomitant]
     Dates: start: 20040715
  7. FOLIC ACID [Concomitant]
     Dates: start: 20040715

REACTIONS (4)
  - DIPLOPIA [None]
  - GINGIVITIS [None]
  - SERUM FERRITIN INCREASED [None]
  - VERTIGO [None]
